FAERS Safety Report 14943862 (Version 1)
Quarter: 2018Q2

REPORT INFORMATION
  Report Type: Report from Study
  Country: US (occurrence: US)
  Receive Date: 20180528
  Receipt Date: 20180528
  Transmission Date: 20180711
  Serious: Yes (Other)
  Sender: FDA-Public Use
  Company Number: US-TEVA-2018-US-896244

PATIENT
  Age: 44 Year
  Sex: Male

DRUGS (1)
  1. COPAXONE [Suspect]
     Active Substance: GLATIRAMER ACETATE
     Indication: MULTIPLE SCLEROSIS
     Route: 058
     Dates: start: 20180423

REACTIONS (10)
  - Dry mouth [Unknown]
  - Cough [Unknown]
  - Dysarthria [Unknown]
  - Hypoaesthesia [Not Recovered/Not Resolved]
  - Hallucination, auditory [Unknown]
  - Swollen tongue [Unknown]
  - Balance disorder [Not Recovered/Not Resolved]
  - Paraesthesia [Not Recovered/Not Resolved]
  - Fatigue [Not Recovered/Not Resolved]
  - Peripheral swelling [Unknown]

NARRATIVE: CASE EVENT DATE: 201805
